FAERS Safety Report 18858028 (Version 1)
Quarter: 2021Q1

REPORT INFORMATION
  Report Type: Spontaneous
  Country: US (occurrence: US)
  Receive Date: 20210205
  Receipt Date: 20210205
  Transmission Date: 20210420
  Serious: Yes (Hospitalization)
  Sender: FDA-Public Use
  Company Number: None

PATIENT
  Age: 80 Year
  Sex: Male
  Weight: 107.5 kg

DRUGS (6)
  1. EMPGLIFLOZIN [Concomitant]
  2. RAMIPRIL. [Concomitant]
     Active Substance: RAMIPRIL
  3. DULAGLUTIDE. [Concomitant]
     Active Substance: DULAGLUTIDE
  4. BAMLANIVIMAB FOR EUA [Suspect]
     Active Substance: BAMLANIVIMAB
     Indication: COVID-19
     Route: 042
     Dates: start: 20210112, end: 20210112
  5. INSULIN GLARGINE [Concomitant]
     Active Substance: INSULIN GLARGINE
  6. OMEPRAZOLE. [Concomitant]
     Active Substance: OMEPRAZOLE

REACTIONS (5)
  - Heart rate decreased [None]
  - Asthenia [None]
  - Respiratory rate increased [None]
  - Oxygen saturation decreased [None]
  - Blood pressure systolic increased [None]

NARRATIVE: CASE EVENT DATE: 20210118
